FAERS Safety Report 6175205-2 (Version None)
Quarter: 2009Q2

REPORT INFORMATION
  Report Type: 
  Country: None (occurrence: None)
  Receive Date: 20090430
  Receipt Date: 20081218
  Transmission Date: 20091009
  Serious: No
  Sender: FDA-Public Use
  Company Number: US-ASTRAZENECA-2008UW28322

PATIENT
  Sex: Male

DRUGS (2)
  1. NEXIUM [Suspect]
     Route: 048
  2. LEXAPRO [Concomitant]

REACTIONS (2)
  - BLOOD PROLACTIN INCREASED [None]
  - GYNAECOMASTIA [None]
